FAERS Safety Report 12538385 (Version 2)
Quarter: 2016Q3

REPORT INFORMATION
  Report Type: Spontaneous
  Country: US (occurrence: US)
  Receive Date: 20160707
  Receipt Date: 20160803
  Transmission Date: 20161109
  Serious: Yes (Other)
  Sender: FDA-Public Use
  Company Number: US-JAZZ-2016-US-012293

PATIENT
  Age: 47 Year
  Sex: Female

DRUGS (39)
  1. PROTRIPTYLINE HCL [Concomitant]
  2. AMITIZA [Concomitant]
     Active Substance: LUBIPROSTONE
  3. FISH OIL CONCENTRATE [Concomitant]
  4. LACTULOSE. [Concomitant]
     Active Substance: LACTULOSE
  5. RITALIN [Concomitant]
     Active Substance: METHYLPHENIDATE HYDROCHLORIDE
  6. DYMISTA [Concomitant]
     Active Substance: AZELASTINE HYDROCHLORIDE\FLUTICASONE PROPIONATE
  7. XYREM [Suspect]
     Active Substance: SODIUM OXYBATE
     Dosage: DOSE ADJUSTMENTS
     Route: 048
     Dates: start: 201003, end: 2012
  8. VIMOVO [Concomitant]
     Active Substance: ESOMEPRAZOLE MAGNESIUM\NAPROXEN
  9. FLOMAX [Concomitant]
     Active Substance: TAMSULOSIN HYDROCHLORIDE
  10. SENNA S [Concomitant]
     Active Substance: DOCUSATE SODIUM\SENNA LEAF
  11. XYREM [Suspect]
     Active Substance: SODIUM OXYBATE
     Indication: NARCOLEPSY
     Dosage: 1.5 G, BID
     Route: 048
     Dates: start: 201001, end: 201003
  12. CALCIUM +D [Concomitant]
     Active Substance: CALCIUM\VITAMIN D
  13. MAXALT [Concomitant]
     Active Substance: RIZATRIPTAN BENZOATE
  14. MULTIVITAMIN [Concomitant]
     Active Substance: VITAMINS
  15. RESTASIS [Concomitant]
     Active Substance: CYCLOSPORINE
  16. ALSUMA [Concomitant]
     Active Substance: SUMATRIPTAN SUCCINATE
  17. EVOXAC [Concomitant]
     Active Substance: CEVIMELINE HYDROCHLORIDE
  18. TORADOL [Concomitant]
     Active Substance: KETOROLAC TROMETHAMINE
  19. VERAPAMIL [Concomitant]
     Active Substance: VERAPAMIL HYDROCHLORIDE
  20. PROVIGIL [Concomitant]
     Active Substance: MODAFINIL
  21. AUBAGIO [Concomitant]
     Active Substance: TERIFLUNOMIDE
  22. CYMBALTA [Concomitant]
     Active Substance: DULOXETINE HYDROCHLORIDE
  23. BOTOX [Concomitant]
     Active Substance: ONABOTULINUMTOXINA
  24. GRALISE [Concomitant]
     Active Substance: GABAPENTIN
  25. SAVELLA [Concomitant]
     Active Substance: MILNACIPRAN HYDROCHLORIDE
  26. PREVACID [Concomitant]
     Active Substance: LANSOPRAZOLE
  27. NAPROXEN SODIUM. [Concomitant]
     Active Substance: NAPROXEN SODIUM
  28. COLACE [Concomitant]
     Active Substance: DOCUSATE SODIUM
  29. TRAMADOL HCL [Concomitant]
     Active Substance: TRAMADOL HYDROCHLORIDE
  30. XYREM [Suspect]
     Active Substance: SODIUM OXYBATE
     Dosage: 4.5 G, FIRST DOSE
     Route: 048
     Dates: start: 201212
  31. ULTRAM [Concomitant]
     Active Substance: TRAMADOL HYDROCHLORIDE
  32. LIALDA DR [Concomitant]
  33. VITAMIN D3 [Concomitant]
     Active Substance: CHOLECALCIFEROL
  34. POTASSIUM CITRATE. [Concomitant]
     Active Substance: POTASSIUM CITRATE
  35. XYREM [Suspect]
     Active Substance: SODIUM OXYBATE
     Dosage: 3 G, SECOND DOSE
     Route: 048
     Dates: start: 201212
  36. LYRICA [Concomitant]
     Active Substance: PREGABALIN
  37. METHOCARBAMOL. [Concomitant]
     Active Substance: METHOCARBAMOL
  38. OXYCODONE HYDROCHLORIDE. [Concomitant]
     Active Substance: OXYCODONE HYDROCHLORIDE
  39. NORTRIPTYLINE HCL [Concomitant]
     Active Substance: NORTRIPTYLINE HYDROCHLORIDE

REACTIONS (2)
  - Hypokalaemia [Not Recovered/Not Resolved]
  - Orthostatic hypotension [Not Recovered/Not Resolved]

NARRATIVE: CASE EVENT DATE: 201606
